FAERS Safety Report 18464564 (Version 9)
Quarter: 2022Q2

REPORT INFORMATION
  Report Type: Spontaneous
  Country: JP (occurrence: JP)
  Receive Date: 20201104
  Receipt Date: 20220402
  Transmission Date: 20220721
  Serious: Yes (Death, Hospitalization)
  Sender: FDA-Public Use
  Company Number: JP-JNJFOC-A-CH2019-196555

PATIENT
  Age: 69 Year
  Sex: Female
  Weight: 42 kg

DRUGS (26)
  1. UPTRAVI [Suspect]
     Active Substance: SELEXIPAG
     Indication: Pulmonary arterial hypertension
     Route: 048
     Dates: start: 20190726, end: 20190822
  2. UPTRAVI [Suspect]
     Active Substance: SELEXIPAG
     Dosage: 0.2 MG, BID
     Route: 048
     Dates: start: 20190705, end: 20190725
  3. UPTRAVI [Suspect]
     Active Substance: SELEXIPAG
     Dosage: 0.2 MG, BID
     Route: 048
     Dates: start: 20190823, end: 20191121
  4. UPTRAVI [Suspect]
     Active Substance: SELEXIPAG
     Dosage: 0.6 MG, QD:  0.4MG IN THE MORNING AND 0.2MG IN THE EVENING
     Route: 048
     Dates: start: 20191122, end: 20200315
  5. UPTRAVI [Suspect]
     Active Substance: SELEXIPAG
     Route: 048
  6. UPTRAVI [Suspect]
     Active Substance: SELEXIPAG
     Route: 048
     Dates: start: 2020, end: 2020
  7. UPTRAVI [Suspect]
     Active Substance: SELEXIPAG
     Dosage: 0.4MG IN THE MORNING AND 0.2MG IN THE EVENING
     Route: 048
     Dates: start: 202011
  8. UPTRAVI [Suspect]
     Active Substance: SELEXIPAG
     Route: 048
     Dates: start: 20200316, end: 20200830
  9. UPTRAVI [Suspect]
     Active Substance: SELEXIPAG
     Route: 048
  10. UPTRAVI [Suspect]
     Active Substance: SELEXIPAG
     Route: 048
     Dates: start: 20200831, end: 20200913
  11. UPTRAVI [Suspect]
     Active Substance: SELEXIPAG
     Route: 048
     Dates: start: 20200914, end: 20201102
  12. UPTRAVI [Suspect]
     Active Substance: SELEXIPAG
     Route: 048
     Dates: start: 20201103, end: 20201117
  13. UPTRAVI [Suspect]
     Active Substance: SELEXIPAG
     Route: 048
     Dates: start: 20201118, end: 20201215
  14. UPTRAVI [Suspect]
     Active Substance: SELEXIPAG
     Route: 048
     Dates: start: 20201216, end: 20210409
  15. UPTRAVI [Suspect]
     Active Substance: SELEXIPAG
     Dosage: 0.6MG, 0.8MG
     Route: 048
     Dates: start: 20201027, end: 20201102
  16. UPTRAVI [Suspect]
     Active Substance: SELEXIPAG
     Dosage: 0.8MG, 1.0MG
     Route: 048
     Dates: start: 20201106, end: 20201117
  17. OPSUMIT [Concomitant]
     Active Substance: MACITENTAN
     Indication: Pulmonary arterial hypertension
     Dosage: 10 MG, QD
     Dates: end: 20210513
  18. ADCIRCA [Concomitant]
     Active Substance: TADALAFIL
     Indication: Pulmonary arterial hypertension
     Dosage: 40 MG, QD
     Dates: end: 20200315
  19. ASPIRIN [Concomitant]
     Active Substance: ASPIRIN
     Dosage: 100 MG, QD
     Dates: end: 20210513
  20. ENALAPRIL MALEATE [Concomitant]
     Active Substance: ENALAPRIL MALEATE
     Dosage: 5 MG, QD
     Dates: end: 20210513
  21. ATORVASTATIN CALCIUM [Concomitant]
     Active Substance: ATORVASTATIN CALCIUM
     Dosage: 5 MG, QD
     Dates: end: 20210513
  22. TOCOPHERYL NICOTINATE [Concomitant]
     Active Substance: TOCOPHERYL NICOTINATE, D-.ALPHA.
     Indication: Scleroderma
     Dosage: 400 MG, QD
     Dates: end: 20210409
  23. ADEMPAS [Concomitant]
     Active Substance: RIOCIGUAT
     Indication: Pulmonary arterial hypertension
     Dates: start: 20200316, end: 20200329
  24. ADEMPAS [Concomitant]
     Active Substance: RIOCIGUAT
     Dates: start: 20200330, end: 20200409
  25. ADEMPAS [Concomitant]
     Active Substance: RIOCIGUAT
     Dates: start: 20200410, end: 20200507
  26. ADEMPAS [Concomitant]
     Active Substance: RIOCIGUAT
     Dates: start: 20200508, end: 20210404

REACTIONS (3)
  - Pulmonary arterial hypertension [Fatal]
  - Pleural effusion [Recovered/Resolved]
  - Diarrhoea [Recovered/Resolved]

NARRATIVE: CASE EVENT DATE: 20190726
